FAERS Safety Report 22612947 (Version 1)
Quarter: 2023Q2

REPORT INFORMATION
  Report Type: Spontaneous
  Country: UZ (occurrence: UZ)
  Receive Date: 20230618
  Receipt Date: 20230618
  Transmission Date: 20230722
  Serious: Yes (Death, Hospitalization, Other)
  Sender: FDA-Public Use
  Company Number: UZ-JNJFOC-20230633017

PATIENT
  Age: 58 Year
  Sex: Male
  Weight: 44 kg

DRUGS (5)
  1. BEDAQUILINE [Suspect]
     Active Substance: BEDAQUILINE
     Indication: Pulmonary tuberculosis
     Dosage: MONDAY, FRIDAY, WEDNESDAY
     Route: 048
     Dates: start: 20220108, end: 20220121
  2. BEDAQUILINE [Suspect]
     Active Substance: BEDAQUILINE
     Dosage: 3/7
     Route: 048
     Dates: start: 20220124, end: 20230604
  3. MOXIFLOXACIN [Suspect]
     Active Substance: MOXIFLOXACIN
     Indication: Pulmonary tuberculosis
     Dosage: 7/7
     Route: 048
     Dates: start: 20220108, end: 20230604
  4. LINEZOLID [Suspect]
     Active Substance: LINEZOLID
     Indication: Pulmonary tuberculosis
     Dosage: 7/7
     Route: 048
     Dates: start: 20220108, end: 20230604
  5. CLOFAZIMINE [Suspect]
     Active Substance: CLOFAZIMINE
     Indication: Pulmonary tuberculosis
     Dosage: 7/7
     Route: 048
     Dates: start: 20220108, end: 20230604

REACTIONS (7)
  - Pulmonary embolism [Fatal]
  - Respiratory failure [Fatal]
  - Cardiomyopathy [Fatal]
  - Cor pulmonale [Fatal]
  - Tuberculosis [Fatal]
  - Cyanosis [Unknown]
  - Blood pressure decreased [Unknown]

NARRATIVE: CASE EVENT DATE: 20230101
